FAERS Safety Report 24095933 (Version 1)
Quarter: 2024Q3

REPORT INFORMATION
  Report Type: Spontaneous
  Country: US (occurrence: US)
  Receive Date: 20240716
  Receipt Date: 20240716
  Transmission Date: 20241016
  Serious: Yes (Hospitalization)
  Sender: MYLAN
  Company Number: US-MYLANLABS-2024M1065289

PATIENT
  Age: 64 Year
  Sex: Female

DRUGS (48)
  1. MIRTAZAPINE [Interacting]
     Active Substance: MIRTAZAPINE
     Indication: Depression
     Dosage: 30 MILLIGRAM, HS (EVERY NIGHT AT BED TIME)
     Route: 048
  2. MIRTAZAPINE [Interacting]
     Active Substance: MIRTAZAPINE
     Indication: Anxiety
  3. MIRTAZAPINE [Interacting]
     Active Substance: MIRTAZAPINE
     Indication: Insomnia
  4. PAROXETINE [Interacting]
     Active Substance: PAROXETINE
     Indication: Depression
     Dosage: 20 MILLIGRAM, BID
     Route: 048
  5. PAROXETINE [Interacting]
     Active Substance: PAROXETINE
     Indication: Anxiety
     Dosage: 40 MILLIGRAM, QD (CONSOLIDATED DOSE WAS GIVEN)
     Route: 048
  6. PAROXETINE [Interacting]
     Active Substance: PAROXETINE
     Indication: Insomnia
  7. SELEGILINE [Interacting]
     Active Substance: SELEGILINE
     Indication: Depression
     Dosage: 5 MILLIGRAM, QD
     Route: 048
  8. SELEGILINE [Interacting]
     Active Substance: SELEGILINE
     Indication: Anxiety
  9. SELEGILINE [Interacting]
     Active Substance: SELEGILINE
     Indication: Insomnia
  10. ZOLPIDEM [Suspect]
     Active Substance: ZOLPIDEM TARTRATE
     Indication: Depression
     Dosage: 10 MILLIGRAM, HS (EVERY NIGHT AT BED TIME)
     Route: 048
  11. ZOLPIDEM [Suspect]
     Active Substance: ZOLPIDEM TARTRATE
     Indication: Anxiety
     Dosage: 5 MILLIGRAM, HS (EVERY NIGHT AT BED TIME)
     Route: 048
  12. ZOLPIDEM [Suspect]
     Active Substance: ZOLPIDEM TARTRATE
     Indication: Insomnia
  13. AMITRIPTYLINE [Interacting]
     Active Substance: AMITRIPTYLINE
     Indication: Depression
     Dosage: 40 MILLIGRAM, HS (EVERY NIGHT AT BED TIME)
     Route: 048
  14. AMITRIPTYLINE [Interacting]
     Active Substance: AMITRIPTYLINE
     Indication: Anxiety
  15. AMITRIPTYLINE [Interacting]
     Active Substance: AMITRIPTYLINE
     Indication: Insomnia
  16. DESVENLAFAXINE [Interacting]
     Active Substance: DESVENLAFAXINE
     Indication: Depression
     Dosage: 100 MILLIGRAM, QD
     Route: 048
  17. DESVENLAFAXINE [Interacting]
     Active Substance: DESVENLAFAXINE
     Indication: Anxiety
  18. DESVENLAFAXINE [Interacting]
     Active Substance: DESVENLAFAXINE
     Indication: Insomnia
  19. OXYCODONE [Concomitant]
     Active Substance: OXYCODONE
     Indication: Analgesic therapy
     Dosage: 10 MILLIGRAM, Q6H
     Route: 048
  20. RITALIN [Suspect]
     Active Substance: METHYLPHENIDATE HYDROCHLORIDE
     Indication: Hereditary motor and sensory neuropathy
     Dosage: 20 MILLIGRAM, BID
     Route: 048
  21. BUPROPION HYDROCHLORIDE [Concomitant]
     Active Substance: BUPROPION HYDROCHLORIDE
     Indication: Depression
     Dosage: 150 MILLIGRAM, BID
     Route: 048
  22. BUPROPION HYDROCHLORIDE [Concomitant]
     Active Substance: BUPROPION HYDROCHLORIDE
     Indication: Anxiety
  23. BUPROPION HYDROCHLORIDE [Concomitant]
     Active Substance: BUPROPION HYDROCHLORIDE
     Indication: Insomnia
  24. BACLOFEN [Concomitant]
     Active Substance: BACLOFEN
     Indication: Hereditary motor and sensory neuropathy
     Dosage: 10 MILLIGRAM, HS (EVERY NIGHT AT BED TIME)
     Route: 048
  25. BACLOFEN [Concomitant]
     Active Substance: BACLOFEN
     Dosage: UNK, (DOSE REDUCED)
     Route: 048
  26. CLONIDINE [Concomitant]
     Active Substance: CLONIDINE
     Indication: Hypertension
     Dosage: 0.1 MILLIGRAM, QD
     Route: 048
  27. CLONIDINE [Concomitant]
     Active Substance: CLONIDINE
     Dosage: 0.2 MILLIGRAM, HS (EVERY NIGHT AT BED TIME)
     Route: 048
  28. FAMOTIDINE [Concomitant]
     Active Substance: FAMOTIDINE
     Indication: Gastrooesophageal reflux disease
     Dosage: 40 MILLIGRAM, QD
     Route: 048
  29. SUCRALFATE [Concomitant]
     Active Substance: SUCRALFATE
     Indication: Gastrooesophageal reflux disease
     Dosage: 1 GRAM, Q3D
     Route: 048
  30. FLUTICASONE PROPIONATE [Concomitant]
     Active Substance: FLUTICASONE PROPIONATE
     Indication: Chronic obstructive pulmonary disease
     Dosage: 50 MICROGRAM, QD, ONE SPRAY DAILY
     Route: 065
  31. HYDROCHLOROTHIAZIDE [Concomitant]
     Active Substance: HYDROCHLOROTHIAZIDE
     Indication: Hypertension
     Dosage: 25 MILLIGRAM, QD
     Route: 048
  32. LOSARTAN [Concomitant]
     Active Substance: LOSARTAN
     Indication: Hypertension
     Dosage: 100 MILLIGRAM, QD
     Route: 048
  33. LOSARTAN [Concomitant]
     Active Substance: LOSARTAN
     Indication: Type 2 diabetes mellitus
  34. MELOXICAM [Concomitant]
     Active Substance: MELOXICAM
     Indication: Analgesic therapy
     Dosage: 7.5 MILLIGRAM, BID
     Route: 048
  35. MONTELUKAST [Concomitant]
     Active Substance: MONTELUKAST SODIUM
     Indication: Chronic obstructive pulmonary disease
     Dosage: 5 MILLIGRAM, QD
     Route: 048
  36. PIOGLITAZONE [Concomitant]
     Active Substance: PIOGLITAZONE
     Indication: Type 2 diabetes mellitus
     Dosage: UNK, BID (15MG/850 MG TWICE DAILY)
     Route: 048
  37. PRAVASTATIN [Concomitant]
     Active Substance: PRAVASTATIN
     Indication: Hyperlipidaemia
     Dosage: 20 MILLIGRAM, QD
     Route: 048
  38. NARCAN [Concomitant]
     Active Substance: NALOXONE HYDROCHLORIDE
     Indication: Toxicity to various agents
     Dosage: UNK
     Route: 065
  39. HALDOL [Concomitant]
     Active Substance: HALOPERIDOL
     Indication: Mental disorder
     Dosage: UNK
     Route: 065
  40. ESZOPICLONE [Concomitant]
     Active Substance: ESZOPICLONE
     Indication: Depression
     Dosage: UNK
     Route: 065
  41. ESZOPICLONE [Concomitant]
     Active Substance: ESZOPICLONE
     Indication: Anxiety
  42. ESZOPICLONE [Concomitant]
     Active Substance: ESZOPICLONE
     Indication: Insomnia
  43. ROPINIROLE [Concomitant]
     Active Substance: ROPINIROLE
     Indication: Product used for unknown indication
     Dosage: 0.25 MILLIGRAM, AT NOON
     Route: 048
  44. ROPINIROLE [Concomitant]
     Active Substance: ROPINIROLE
     Dosage: 0.75 MILLIGRAM, HS (EVERY NIGHT AT BED TIME)
     Route: 048
  45. GABAPENTIN [Concomitant]
     Active Substance: GABAPENTIN
     Indication: Product used for unknown indication
     Dosage: 600 MILLIGRAM, AM (IN MORNING)
     Route: 048
  46. GABAPENTIN [Concomitant]
     Active Substance: GABAPENTIN
     Dosage: 1200 MILLIGRAM, HS (EVERY NIGHT AT BED TIME)
     Route: 048
  47. ALLOPURINOL [Concomitant]
     Active Substance: ALLOPURINOL
     Indication: Product used for unknown indication
     Dosage: 300 MILLIGRAM, QD
     Route: 048
  48. FERROUS GLUCONATE [Concomitant]
     Active Substance: FERROUS GLUCONATE
     Indication: Product used for unknown indication
     Dosage: 240 MILLIGRAM, QD
     Route: 048

REACTIONS (3)
  - Drug interaction [Recovering/Resolving]
  - Serotonin syndrome [Recovering/Resolving]
  - Treatment noncompliance [Unknown]
